FAERS Safety Report 5214036-4 (Version None)
Quarter: 2007Q1

REPORT INFORMATION
  Report Type: 
  Country: None (occurrence: None)
  Receive Date: 20070122
  Receipt Date: 20070116
  Transmission Date: 20070707
  Serious: Yes (Hospitalization)
  Sender: FDA-Public Use
  Company Number: US-ELI_LILLY_AND_COMPANY-US200609003748

PATIENT
  Age: 29 Year
  Sex: Female
  Weight: 113.38 kg

DRUGS (3)
  1. ZYPREXA [Suspect]
     Indication: PARANOIA
     Dosage: 5 MG, UNK
     Dates: start: 20021101, end: 20040101
  2. ZYPREXA [Suspect]
     Dosage: 20 MG, UNK
  3. ARIPIPRAZOLE [Concomitant]
     Dates: start: 20040101

REACTIONS (2)
  - DIABETES MELLITUS [None]
  - UTERINE HAEMORRHAGE [None]
